FAERS Safety Report 9206098 (Version 1)
Quarter: 2013Q1

REPORT INFORMATION
  Report Type: Spontaneous
  Country: US (occurrence: None)
  Receive Date: 20120709
  Receipt Date: 20120709
  Transmission Date: 20140127
  Serious: Yes (Hospitalization, Other)
  Sender: FDA-Public Use
  Company Number: PHHY2010US47711

PATIENT
  Age: 81 Year
  Sex: Male

DRUGS (6)
  1. GLEEVEC (IMATINIB) UNKNOWN [Suspect]
     Dates: start: 20080421, end: 20100626
  2. ALBUTEROL (SALBUTAMOL) [Concomitant]
  3. PULMICORT (BUDESONIDE) [Concomitant]
  4. HYTRIN (TERAZOSIN HYDROCHLORIDE) [Concomitant]
  5. DOXYCYCLIN (DOXYCYCLIN) [Concomitant]
  6. NEXIUM (ESOMEPRAZOLE MAGNESIUM) [Concomitant]

REACTIONS (4)
  - Pneumonia [None]
  - Gene mutation identification test positive [None]
  - Haemoglobin decreased [None]
  - Reticulocyte count increased [None]
